FAERS Safety Report 6310064-6 (Version None)
Quarter: 2009Q3

REPORT INFORMATION
  Report Type: 
  Country: None (occurrence: None)
  Receive Date: 20090814
  Receipt Date: 20090806
  Transmission Date: 20100115
  Serious: Yes (Hospitalization, Other)
  Sender: FDA-Public Use
  Company Number: BR-ABBOTT-08P-020-0484043-00

PATIENT
  Sex: Female
  Weight: 63 kg

DRUGS (5)
  1. HUMIRA [Suspect]
     Indication: RHEUMATOID ARTHRITIS
     Route: 058
     Dates: start: 20080603, end: 20081207
  2. UNCARIA TOMENTOSA [Concomitant]
     Indication: DRUG USE FOR UNKNOWN INDICATION
  3. DICLOFENAC [Concomitant]
     Indication: PAIN
  4. UNKNOWN ANALGESIC THERAPY [Concomitant]
     Indication: DRUG USE FOR UNKNOWN INDICATION
  5. NEOSALDINA [Concomitant]
     Indication: HEADACHE

REACTIONS (10)
  - ABASIA [None]
  - BREAST CANCER [None]
  - BREAST SWELLING [None]
  - COUGH [None]
  - DIPLEGIA [None]
  - HYPERTENSION [None]
  - LUNG NEOPLASM MALIGNANT [None]
  - PNEUMONIA [None]
  - THROMBOSIS [None]
  - WHEELCHAIR USER [None]
